FAERS Safety Report 21547062 (Version 2)
Quarter: 2023Q1

REPORT INFORMATION
  Report Type: Spontaneous
  Country: US (occurrence: US)
  Receive Date: 20221103
  Receipt Date: 20230206
  Transmission Date: 20230417
  Serious: Yes (Other)
  Sender: FDA-Public Use
  Company Number: US-BRISTOL-MYERS SQUIBB COMPANY-2022-131248

PATIENT
  Age: 88 Year
  Sex: Female

DRUGS (2)
  1. REVLIMID [Suspect]
     Active Substance: LENALIDOMIDE
     Indication: Pancytopenia
     Dosage: TAKE 1 CAPSULE BY MOUTH WHOLE W/ WATER W/ OR W/O FOOD EVERY DAY ON DAYS 1-21 OF EACH 28 DAY CYCLE
     Route: 048
  2. REVLIMID [Suspect]
     Active Substance: LENALIDOMIDE
     Dosage: TAKE 1 WHOLE CAPSULE BY MOUTH WITH WATER, W/ OR W/O FOOD EVERY DAY ON DAYS 1-21 OF EACH 28 DAY CYCLE
     Route: 048
     Dates: start: 20221028, end: 20230130

REACTIONS (2)
  - Thrombosis [Unknown]
  - Off label use [Unknown]
